FAERS Safety Report 9235282 (Version 2)
Quarter: 2013Q2

REPORT INFORMATION
  Report Type: Spontaneous
  Country: US (occurrence: US)
  Receive Date: 20130417
  Receipt Date: 20130520
  Transmission Date: 20140414
  Serious: No
  Sender: FDA-Public Use
  Company Number: US-BIOGENIDEC-2013BI032148

PATIENT
  Age: 81 Year
  Sex: Female

DRUGS (2)
  1. TYSABRI [Suspect]
     Indication: MULTIPLE SCLEROSIS
     Route: 042
     Dates: start: 20071204
  2. TYSABRI [Suspect]
     Indication: MULTIPLE SCLEROSIS
     Route: 042
     Dates: end: 20130228

REACTIONS (7)
  - Groin infection [Recovered/Resolved]
  - Lower limb fracture [Recovered/Resolved]
  - Sternal injury [Recovered/Resolved]
  - Pyrexia [Recovered/Resolved]
  - Fall [Recovered/Resolved]
  - Paraesthesia [Recovered/Resolved]
  - Ankle fracture [Not Recovered/Not Resolved]
